FAERS Safety Report 6463271-6 (Version None)
Quarter: 2009Q4

REPORT INFORMATION
  Report Type: 
  Country: None (occurrence: None)
  Receive Date: 20091130
  Receipt Date: 20090604
  Transmission Date: 20100525
  Serious: Yes (Other)
  Sender: FDA-Public Use
  Company Number: US-AMGEN-QUU350032

PATIENT
  Sex: Male

DRUGS (2)
  1. ENBREL [Suspect]
     Indication: PSORIASIS
     Dates: start: 20070101, end: 20080911
  2. HUMIRA [Concomitant]
     Dates: start: 20081001

REACTIONS (2)
  - LUNG NEOPLASM MALIGNANT [None]
  - PSORIASIS [None]
